FAERS Safety Report 22254132 (Version 1)
Quarter: 2023Q2

REPORT INFORMATION
  Report Type: Spontaneous
  Country: CN (occurrence: None)
  Receive Date: 20230426
  Receipt Date: 20230426
  Transmission Date: 20230721
  Serious: Yes (Other)
  Sender: FDA-Public Use
  Company Number: CN-ROCHE-3336996

PATIENT
  Age: 63 Year
  Sex: Female

DRUGS (2)
  1. ALECENSA [Suspect]
     Active Substance: ALECTINIB HYDROCHLORIDE
     Indication: Lung adenocarcinoma
     Route: 065
     Dates: start: 2020, end: 202007
  2. CRIZOTINIB [Concomitant]
     Active Substance: CRIZOTINIB
     Indication: Lung adenocarcinoma
     Dosage: DF=TABLET
     Route: 048
     Dates: start: 20200729

REACTIONS (6)
  - Oesophageal ulcer [Unknown]
  - Face oedema [Unknown]
  - Oedema peripheral [Unknown]
  - Blood albumin decreased [Unknown]
  - Neutrophil count decreased [Unknown]
  - Disease progression [Unknown]

NARRATIVE: CASE EVENT DATE: 20201201
